FAERS Safety Report 15712621 (Version 1)
Quarter: 2018Q4

REPORT INFORMATION
  Report Type: Spontaneous
  Country: US (occurrence: US)
  Receive Date: 20181212
  Receipt Date: 20181212
  Transmission Date: 20190205
  Serious: Yes (Hospitalization, Other)
  Sender: FDA-Public Use
  Company Number: US-ACCORD-095639

PATIENT
  Age: 79 Year
  Sex: Male
  Weight: 152 kg

DRUGS (1)
  1. LISINOPRIL. [Suspect]
     Active Substance: LISINOPRIL
     Indication: HYPERTENSION

REACTIONS (3)
  - Respiratory distress [Recovered/Resolved]
  - Angioedema [Recovered/Resolved]
  - Respiratory acidosis [Recovered/Resolved]
